FAERS Safety Report 10300285 (Version 1)
Quarter: 2014Q3

REPORT INFORMATION
  Report Type: Spontaneous
  Country: GB (occurrence: GB)
  Receive Date: 20140712
  Receipt Date: 20140712
  Transmission Date: 20150326
  Serious: Yes (Life-Threatening, Other)
  Sender: FDA-Public Use
  Company Number: PHHY2014GB084015

PATIENT
  Age: 78 Year
  Sex: Male
  Weight: 76.2 kg

DRUGS (8)
  1. ALENDRONIC ACID [Suspect]
     Active Substance: ALENDRONIC ACID
     Indication: OSTEOPOROSIS CIRCUMSCRIPTA CRANII
     Dosage: 70 MG, UNK
     Route: 048
     Dates: start: 20140101
  2. FYBOGEL [Concomitant]
     Active Substance: PLANTAGO OVATA SEED
  3. PREDNISOLONE. [Concomitant]
     Active Substance: PREDNISOLONE
  4. AMLODIPINE [Concomitant]
     Active Substance: AMLODIPINE BESYLATE
  5. WARFARIN [Concomitant]
     Active Substance: WARFARIN
  6. DURAMETACIN [Concomitant]
  7. LACTULOSE. [Concomitant]
     Active Substance: LACTULOSE
  8. SIMVASTATIN. [Concomitant]
     Active Substance: SIMVASTATIN

REACTIONS (7)
  - Choking [Not Recovered/Not Resolved]
  - Laryngeal disorder [Not Recovered/Not Resolved]
  - Obstructive airways disorder [Recovered/Resolved]
  - Haemoptysis [Not Recovered/Not Resolved]
  - Asthma [Not Recovered/Not Resolved]
  - Productive cough [Not Recovered/Not Resolved]
  - Wheezing [Not Recovered/Not Resolved]

NARRATIVE: CASE EVENT DATE: 20140313
